FAERS Safety Report 8891001 (Version 2)
Quarter: 2012Q4

REPORT INFORMATION
  Report Type: 
  Country: SE (occurrence: SE)
  Receive Date: 20121106
  Receipt Date: 20121109
  Transmission Date: 20130627
  Serious: Yes (Hospitalization, Other)
  Sender: FDA-Public Use
  Company Number: SE-MERCK-1211SWE000807

PATIENT
  Sex: Female

DRUGS (5)
  1. JANUVIA [Suspect]
     Indication: DIABETES MELLITUS
     Dosage: 100 mg, UNK
     Route: 048
     Dates: start: 201101, end: 201110
  2. JANUVIA [Suspect]
     Dosage: UNK
     Route: 048
     Dates: start: 201210, end: 201211
  3. WARAN [Concomitant]
  4. LEVAXIN [Concomitant]
  5. PREDNISOLON [Concomitant]

REACTIONS (6)
  - Myocardial infarction [Recovered/Resolved]
  - Oropharyngeal discomfort [Recovering/Resolving]
  - Dyspepsia [Not Recovered/Not Resolved]
  - Hyperlipidaemia [Unknown]
  - Malaise [Unknown]
  - Dysphonia [Recovering/Resolving]
